FAERS Safety Report 4446439-X (Version None)
Quarter: 2004Q3

REPORT INFORMATION
  Report Type: 
  Country: None (occurrence: None)
  Receive Date: 20040907
  Receipt Date: 20040825
  Transmission Date: 20050211
  Serious: Yes (Hospitalization, Other)
  Sender: FDA-Public Use
  Company Number: 2004046062

PATIENT
  Sex: Female
  Weight: 83.9154 kg

DRUGS (6)
  1. NEURONTIN [Suspect]
     Indication: MIGRAINE
     Dosage: ORAL
     Route: 048
     Dates: start: 20010101
  2. LORAZEPAM [Suspect]
     Indication: ILL-DEFINED DISORDER
     Dates: start: 20040601, end: 20040601
  3. MORPHINE SULFATE [Concomitant]
  4. MORPHINE [Concomitant]
  5. TEMAZEPAM [Concomitant]
  6. VALPROATE SODIUM [Concomitant]

REACTIONS (21)
  - AMNESIA [None]
  - ANGER [None]
  - BLOOD GLUCOSE DECREASED [None]
  - BLOOD PRESSURE INCREASED [None]
  - CIRCULATORY COLLAPSE [None]
  - COMA [None]
  - CONVULSION [None]
  - DIARRHOEA [None]
  - DRUG INEFFECTIVE [None]
  - DYSGEUSIA [None]
  - FEELING ABNORMAL [None]
  - HAEMOGLOBIN DECREASED [None]
  - HALLUCINATION [None]
  - HEART RATE INCREASED [None]
  - HYPERHIDROSIS [None]
  - HYPERMETROPIA [None]
  - OVERDOSE [None]
  - PANIC ATTACK [None]
  - RESPIRATORY RATE DECREASED [None]
  - URINARY TRACT INFECTION [None]
  - VISUAL DISTURBANCE [None]
